FAERS Safety Report 10467425 (Version 2)
Quarter: 2014Q3

REPORT INFORMATION
  Report Type: Spontaneous
  Country: US (occurrence: US)
  Receive Date: 20140922
  Receipt Date: 20140922
  Transmission Date: 20150326
  Serious: Yes (Other)
  Sender: FDA-Public Use
  Company Number: US-BRISTOL-MYERS SQUIBB COMPANY-21349824

PATIENT
  Age: 25 Year
  Sex: Female
  Weight: 66.2 kg

DRUGS (4)
  1. ABILIFY [Suspect]
     Active Substance: ARIPIPRAZOLE
     Route: 048
  2. KLONOPIN [Concomitant]
     Active Substance: CLONAZEPAM
  3. CELEXA [Concomitant]
     Active Substance: CITALOPRAM HYDROBROMIDE
  4. ABILIFY MAINTENA [Suspect]
     Active Substance: ARIPIPRAZOLE
     Indication: BIPOLAR DISORDER
     Dosage: STOPPED ON 26-AUG-2014
     Route: 030
     Dates: start: 20140819

REACTIONS (3)
  - Akathisia [Unknown]
  - Agitation [Unknown]
  - Vertigo [Unknown]

NARRATIVE: CASE EVENT DATE: 201408
